FAERS Safety Report 11368515 (Version 3)
Quarter: 2015Q3

REPORT INFORMATION
  Report Type: Spontaneous
  Country: JP (occurrence: None)
  Receive Date: 20150810
  Receipt Date: 20150911
  Transmission Date: 20151125
  Serious: Yes (Death, Hospitalization, Other)
  Sender: FDA-Public Use
  Company Number: ADR-2015-01501

PATIENT
  Age: 36 Year
  Sex: Female

DRUGS (1)
  1. GABALON INTRATHECAL (0.05%) [Suspect]
     Active Substance: BACLOFEN
     Dosage: 31.45 MCG/DAY

REACTIONS (4)
  - Tonsillitis [None]
  - Pneumonia [None]
  - Productive cough [None]
  - Asphyxia [None]
